FAERS Safety Report 15046395 (Version 1)
Quarter: 2018Q2

REPORT INFORMATION
  Report Type: Spontaneous
  Country: DE (occurrence: DE)
  Receive Date: 20180621
  Receipt Date: 20180621
  Transmission Date: 20180711
  Serious: Yes (Hospitalization)
  Sender: FDA-Public Use
  Company Number: DE-TEVA-2018-DE-911172

PATIENT
  Age: 30 Year
  Sex: Male

DRUGS (8)
  1. ETHAMBUTOL [Concomitant]
     Active Substance: ETHAMBUTOL HYDROCHLORIDE
     Dosage: 1200 MILLIGRAM DAILY;
  2. ALLOPURINOL. [Concomitant]
     Active Substance: ALLOPURINOL
     Dosage: 100 MILLIGRAM DAILY;
  3. RIFAMPICIN [Concomitant]
     Active Substance: RIFAMPIN
     Dosage: 600 MILLIGRAM DAILY;
  4. THIAMIN (VITAMIN B1)/PYRIDOXIN (VITAMIN B6) [Concomitant]
     Dosage: NK MG
  5. ISONIAZID. [Concomitant]
     Active Substance: ISONIAZID
     Dosage: 250 MILLIGRAM DAILY;
  6. COLECALCIFEROL [Concomitant]
     Active Substance: CHOLECALCIFEROL
     Dosage: 1000 IE,
  7. PYRAZINAMID [Concomitant]
     Active Substance: PYRAZINAMIDE
     Dosage: 1500 MILLIGRAM DAILY;
  8. MOXIFLOXACIN. [Suspect]
     Active Substance: MOXIFLOXACIN
     Dosage: 400 MILLIGRAM DAILY;
     Route: 065

REACTIONS (4)
  - Diarrhoea [Unknown]
  - Fatigue [Unknown]
  - Malaise [Unknown]
  - Pyrexia [Unknown]
